FAERS Safety Report 25607372 (Version 2)
Quarter: 2025Q3

REPORT INFORMATION
  Report Type: Spontaneous
  Country: JP (occurrence: JP)
  Receive Date: 20250725
  Receipt Date: 20250806
  Transmission Date: 20251021
  Serious: No
  Sender: AMGEN
  Company Number: JP-KYOWAKIRIN-2025KK013980

PATIENT
  Age: 6 Decade
  Sex: Female

DRUGS (1)
  1. FILGRASTIM [Suspect]
     Active Substance: FILGRASTIM
     Indication: Neutropenia
     Route: 065

REACTIONS (1)
  - No adverse event [Unknown]
